FAERS Safety Report 6919129-9 (Version None)
Quarter: 2010Q3

REPORT INFORMATION
  Report Type: 
  Country: None (occurrence: None)
  Receive Date: 20100811
  Receipt Date: 20100804
  Transmission Date: 20110219
  Serious: Yes (Hospitalization, Other)
  Sender: FDA-Public Use
  Company Number: DE-ROCHE-703529

PATIENT
  Sex: Male
  Weight: 100 kg

DRUGS (7)
  1. ROACTEMRA [Suspect]
     Indication: RHEUMATOID ARTHRITIS
     Dosage: CORRESPONDING TO 8 MG/KG BODYWEIGHT
     Route: 042
     Dates: start: 20090901
  2. ROACTEMRA [Suspect]
     Route: 042
     Dates: start: 20091216, end: 20091216
  3. ROACTEMRA [Suspect]
     Route: 042
     Dates: start: 20100114, end: 20100114
  4. ROACTEMRA [Suspect]
     Route: 042
     Dates: start: 20100211, end: 20100211
  5. ROACTEMRA [Suspect]
     Route: 042
     Dates: start: 20100311, end: 20100311
  6. ARAVA [Concomitant]
     Indication: RHEUMATOID ARTHRITIS
     Route: 048
  7. PREDNISOLONE [Concomitant]
     Indication: RHEUMATOID ARTHRITIS
     Route: 048

REACTIONS (2)
  - DEEP VEIN THROMBOSIS [None]
  - ERYSIPELAS [None]
